APPROVED DRUG PRODUCT: NITROFURANTOIN
Active Ingredient: NITROFURANTOIN
Strength: 25MG/5ML
Dosage Form/Route: SUSPENSION;ORAL
Application: A208909 | Product #001 | TE Code: AB
Applicant: SOMERSET THERAPEUTICS LLC
Approved: Jan 14, 2025 | RLD: No | RS: No | Type: RX